FAERS Safety Report 21041140 (Version 1)
Quarter: 2022Q3

REPORT INFORMATION
  Report Type: Spontaneous
  Country: US (occurrence: None)
  Receive Date: 20220705
  Receipt Date: 20220705
  Transmission Date: 20221026
  Serious: No
  Sender: FDA-Public Use
  Company Number: US-ROCHE-3128320

PATIENT

DRUGS (1)
  1. OCREVUS [Suspect]
     Active Substance: OCRELIZUMAB
     Indication: Relapsing multiple sclerosis
     Route: 065
     Dates: start: 201807

REACTIONS (7)
  - COVID-19 [Unknown]
  - Skin ulcer [Unknown]
  - Thermal burn [Unknown]
  - Pain [Unknown]
  - Papule [Unknown]
  - Skin discolouration [Unknown]
  - Pyrexia [Unknown]
